FAERS Safety Report 6103865-0 (Version None)
Quarter: 2009Q1

REPORT INFORMATION
  Report Type: 
  Country: None (occurrence: None)
  Receive Date: 20090305
  Receipt Date: 20080324
  Transmission Date: 20090719
  Serious: Yes (Death, Hospitalization, Other)
  Sender: FDA-Public Use
  Company Number: US-ASTRAZENECA-2007UW09505

PATIENT
  Age: 17712 Day
  Sex: Female

DRUGS (85)
  1. SEROQUEL [Suspect]
     Indication: BIPOLAR DISORDER
     Route: 048
     Dates: end: 20060328
  2. DIAZEPAM [Concomitant]
     Dates: start: 20020307, end: 20040304
  3. SYNTHROID [Concomitant]
     Dates: start: 20020307, end: 20020325
  4. SYNTHROID [Concomitant]
     Dates: start: 20020325, end: 20020520
  5. SYNTHROID [Concomitant]
     Route: 048
     Dates: start: 20020520, end: 20030304
  6. SYNTHROID [Concomitant]
     Route: 048
     Dates: start: 20030520
  7. SYNTHROID [Concomitant]
     Dates: start: 20020526
  8. SYNTHROID [Concomitant]
     Dates: start: 20020912
  9. CENESTIN [Concomitant]
     Dates: start: 20020307, end: 20030217
  10. CENESTIN [Concomitant]
     Dates: start: 20030304
  11. LIPITOR [Concomitant]
     Route: 048
     Dates: start: 20020108
  12. LIPITOR [Concomitant]
     Dates: start: 20020526
  13. PREVACID [Concomitant]
     Dates: start: 20030403
  14. MONOPRIL [Concomitant]
     Route: 048
     Dates: start: 20020307
  15. MONOPRIL [Concomitant]
     Dates: start: 20020526
  16. MONOPRIL [Concomitant]
     Route: 048
     Dates: start: 20030910
  17. MONOPRIL [Concomitant]
     Dates: start: 20020912
  18. DETROL LA [Concomitant]
     Dates: end: 20030304
  19. CLONIDINE [Concomitant]
     Route: 048
     Dates: start: 20020930
  20. CLONIDINE [Concomitant]
     Dates: start: 20030201
  21. CLONIDINE [Concomitant]
     Route: 048
     Dates: start: 20031010
  22. CLONIDINE [Concomitant]
     Dates: start: 20020526
  23. CLONIDINE [Concomitant]
     Route: 048
     Dates: start: 20020912
  24. HYDROCODONE [Concomitant]
     Indication: PAIN
     Dates: end: 20030304
  25. HYDROCODONE [Concomitant]
  26. HYDROCODONE [Concomitant]
     Dates: start: 20020319
  27. VIOXX [Concomitant]
     Dates: start: 20020307, end: 20020917
  28. VIOXX [Concomitant]
     Dates: start: 20020526
  29. PRILOSEC [Concomitant]
     Route: 048
     Dates: start: 20020307, end: 20030217
  30. CARTIA XT [Concomitant]
     Route: 048
     Dates: start: 20020815
  31. CARTIA XT [Concomitant]
     Dates: start: 20020526
  32. LEXAPRO [Concomitant]
     Indication: PAIN MANAGEMENT
     Dates: start: 20030301
  33. LEXAPRO [Concomitant]
     Dates: start: 20030603
  34. BEXTRA [Concomitant]
     Dates: start: 20030301
  35. TOPAMAX [Concomitant]
     Dates: start: 20030301
  36. TOPAMAX [Concomitant]
     Dates: start: 20020520, end: 20020917
  37. TOPAMAX [Concomitant]
  38. TOPAMAX [Concomitant]
     Dates: start: 20020526
  39. SOMA [Concomitant]
     Dates: start: 20020222, end: 20020917
  40. SOMA [Concomitant]
     Dates: start: 20020526
  41. MEPRAZINE [Concomitant]
     Dates: start: 20020307, end: 20020917
  42. NEURIMTIN [Concomitant]
     Dosage: TWO TIMES A DAY
     Dates: start: 20020307, end: 20020325
  43. TRILEPTAL [Concomitant]
     Dates: start: 20020424, end: 20020917
  44. NEXIUM [Concomitant]
     Dates: start: 20030603
  45. DITROPAN [Concomitant]
     Dates: start: 20030603
  46. IBUPROFEN [Concomitant]
  47. NAPROSYN [Concomitant]
  48. RELAFEN [Concomitant]
  49. CELEBREX [Concomitant]
  50. ULTRAM [Concomitant]
  51. TYLENOL W/ CODEINE NO. 3 [Concomitant]
  52. TYLENOL NO4 [Concomitant]
  53. DEMEROL [Concomitant]
  54. STADOL [Concomitant]
  55. BACLOFEN [Concomitant]
  56. FLEXERIL [Concomitant]
  57. ROBAXIN [Concomitant]
  58. ZANAFLEX [Concomitant]
     Dates: start: 20020912
  59. PERCOCET [Concomitant]
     Indication: PAIN
  60. OXYCONTIN [Concomitant]
     Route: 048
     Dates: start: 20020912
  61. MS CONTIN [Concomitant]
  62. MIDRIN [Concomitant]
  63. TRAZODONE HCL [Concomitant]
  64. ZYRTEC [Concomitant]
     Route: 048
     Dates: start: 20021101
  65. SYNESTIN [Concomitant]
     Dates: start: 20020526
  66. ZOLOFT [Concomitant]
     Dates: start: 20020222
  67. ZOLOFT [Concomitant]
     Dates: start: 20020526
  68. LORTAB [Concomitant]
     Dates: start: 20020526
  69. PHENERGAN [Concomitant]
     Dates: start: 20020526
  70. MEPERGAN [Concomitant]
     Dosage: 1 EVERY 6-8 HOURS AS REQUIRED
     Dates: start: 20020922
  71. BACTRIM DS [Concomitant]
     Dosage: DAILY
     Dates: start: 20020922
  72. CLARITIN [Concomitant]
  73. FUROSEMIDE [Concomitant]
  74. LEVOXYL [Concomitant]
  75. MONOPRIL-HCT [Concomitant]
  76. CELESTONE SOLUSPAN [Concomitant]
     Indication: ARTHRALGIA
     Dosage: DAILY
  77. KEFLEX [Concomitant]
     Dates: start: 20020201
  78. REGLAN [Concomitant]
  79. DECADRON [Concomitant]
  80. NEURONTIN [Concomitant]
     Dates: start: 20020912
  81. ZYPREXA [Concomitant]
     Dates: start: 20020912
  82. CARTIA XT [Concomitant]
     Dates: start: 20020912
  83. ESTRATEST [Concomitant]
     Dosage: DAILY
     Dates: start: 20020912
  84. HYOSCYAMINE [Concomitant]
     Dosage: 1 OR 2  TWO TIMES A DAY
     Dates: start: 20020912
  85. TIZANIDINE HCL [Concomitant]
     Dates: start: 20020912

REACTIONS (34)
  - ABDOMINAL PAIN [None]
  - ACCELERATED HYPERTENSION [None]
  - BACK PAIN [None]
  - CARDIAC MURMUR [None]
  - DEATH [None]
  - DIARRHOEA [None]
  - DIZZINESS [None]
  - FAECAL INCONTINENCE [None]
  - FALL [None]
  - GASTROOESOPHAGEAL REFLUX DISEASE [None]
  - HEADACHE [None]
  - HYPERCHOLESTEROLAEMIA [None]
  - HYPOKALAEMIA [None]
  - HYPOMAGNESAEMIA [None]
  - HYPONATRAEMIA [None]
  - HYPOTHYROIDISM [None]
  - INTERVERTEBRAL DISC DISORDER [None]
  - METABOLIC ALKALOSIS [None]
  - MUSCLE SPASMS [None]
  - MYALGIA [None]
  - NAUSEA [None]
  - NIGHT SWEATS [None]
  - OEDEMA PERIPHERAL [None]
  - PAIN [None]
  - PANCREATITIS ACUTE [None]
  - PELVIC DISCOMFORT [None]
  - PELVIC PAIN [None]
  - POLLAKIURIA [None]
  - RASH [None]
  - RHINITIS [None]
  - TENDERNESS [None]
  - TYPE 2 DIABETES MELLITUS [None]
  - URINARY INCONTINENCE [None]
  - VOMITING [None]
